FAERS Safety Report 4501463-3 (Version None)
Quarter: 2004Q4

REPORT INFORMATION
  Report Type: 
  Country: None (occurrence: None)
  Receive Date: 20041115
  Receipt Date: 20041110
  Transmission Date: 20050328
  Serious: Yes (Death)
  Sender: FDA-Public Use
  Company Number: DE-MERCK-0411DEU00207

PATIENT
  Age: 78 Year
  Sex: Female

DRUGS (1)
  1. VIOXX [Suspect]
     Indication: POLYARTHRITIS
     Route: 048
     Dates: start: 20001001

REACTIONS (2)
  - CARDIAC FAILURE [None]
  - DYSPNOEA [None]
